FAERS Safety Report 7824039-9 (Version None)
Quarter: 2011Q4

REPORT INFORMATION
  Report Type: 
  Country: None (occurrence: None)
  Receive Date: 20111019
  Receipt Date: 20111011
  Transmission Date: 20120403
  Serious: Yes (Other)
  Sender: FDA-Public Use
  Company Number: PHHY2011CA90059

PATIENT

DRUGS (3)
  1. ALISKIREN [Suspect]
     Dosage: 150 MG, UNK
  2. CALCIUM CHANNEL BLOCKERS [Concomitant]
  3. BETA BLOCKING AGENTS [Concomitant]

REACTIONS (2)
  - RENAL CELL CARCINOMA [None]
  - DIABETES MELLITUS [None]
